FAERS Safety Report 9111226 (Version 1)
Quarter: 2013Q1

REPORT INFORMATION
  Report Type: Spontaneous
  Country: US (occurrence: US)
  Receive Date: 20130219
  Receipt Date: 20130219
  Transmission Date: 20140127
  Serious: No
  Sender: FDA-Public Use
  Company Number: US-BRISTOL-MYERS SQUIBB COMPANY-17215120

PATIENT
  Age: 66 Year
  Sex: Female
  Weight: 72.56 kg

DRUGS (2)
  1. ORENCIA [Suspect]
     Indication: RHEUMATOID ARTHRITIS
     Dosage: LAST INF:20NOV2012
     Route: 042
  2. METHOTREXATE [Suspect]

REACTIONS (1)
  - Aphthous stomatitis [Unknown]
